FAERS Safety Report 9525173 (Version 1)
Quarter: 2013Q1

REPORT INFORMATION
  Report Type: Spontaneous
  Country: US (occurrence: None)
  Receive Date: 20130314
  Receipt Date: 20130314
  Transmission Date: 20140127
  Serious: No
  Sender: FDA-Public Use
  Company Number: 1301USA011832

PATIENT
  Age: 67 Year
  Sex: Male

DRUGS (4)
  1. VICTRELIS (BOCEPREVIR) CAPSULE [Suspect]
     Indication: HEPATITIS C
     Dosage: 800 MG, QD
     Dates: start: 2012
  2. PEGINTRON (PEGINTERFERON ALFA-2B) POWDER FOR INJECTION [Suspect]
     Indication: HEPATITIS C
     Dosage: UNK?
     Dates: start: 2012
  3. INTRONA [Suspect]
     Indication: HEPATITIS C
     Dosage: 120 MICROGRAM, QW
  4. RIBAPAK (RIBAVIRIN) [Suspect]
     Indication: HEPATITIS C
     Dosage: UNK

REACTIONS (3)
  - Pyrexia [None]
  - Chills [None]
  - Dizziness [None]
